FAERS Safety Report 7698871-9 (Version None)
Quarter: 2011Q3

REPORT INFORMATION
  Report Type: 
  Country: None (occurrence: None)
  Receive Date: 20110819
  Receipt Date: 20110811
  Transmission Date: 20111222
  Serious: Yes (Other)
  Sender: FDA-Public Use
  Company Number: PHEH2009US13748

PATIENT
  Sex: Female

DRUGS (7)
  1. ZOMETA [Suspect]
  2. EFFEXOR [Concomitant]
     Dosage: 75 MG, QD
     Route: 048
  3. AMBIEN [Concomitant]
     Dosage: 10 MG, QHS
     Route: 048
  4. FEMARA [Concomitant]
  5. LEXAPRO [Concomitant]
     Dosage: 20 MG, QD
     Route: 048
  6. VICODIN [Concomitant]
  7. MULTI-VITAMINS [Concomitant]

REACTIONS (16)
  - INJURY [None]
  - BREAST CANCER [None]
  - CHRONIC SINUSITIS [None]
  - BACK PAIN [None]
  - ORAL CAVITY FISTULA [None]
  - GENERAL PHYSICAL HEALTH DETERIORATION [None]
  - HEPATIC STEATOSIS [None]
  - OSTEONECROSIS OF JAW [None]
  - ANHEDONIA [None]
  - PAIN [None]
  - CYST [None]
  - DEPRESSION [None]
  - ANXIETY [None]
  - LYMPHOEDEMA [None]
  - OSTEOARTHRITIS [None]
  - LYMPHADENOPATHY MEDIASTINAL [None]
